FAERS Safety Report 8163688-8 (Version None)
Quarter: 2012Q1

REPORT INFORMATION
  Report Type: 
  Country: None (occurrence: None)
  Receive Date: 20120202
  Receipt Date: 20120207
  Transmission Date: 20120608
  Serious: Yes (Life-Threatening, Hospitalization, Other)
  Sender: FDA-Public Use
  Company Number: ACO_27257_2011

PATIENT
  Age: 68 Year
  Sex: Male

DRUGS (13)
  1. L-CARN (LEVOCARNITINE) [Concomitant]
  2. CALCIVIT D (CALCIUM CARBONATE, COLECALCIFEROL) [Concomitant]
  3. COENZYME Q10 [Concomitant]
  4. CALCICARE (CALCIUM GLUBIONATE, COLECALCIFEROL) [Concomitant]
  5. VITAMIN B-12 [Concomitant]
  6. SELEN (SELENIUM) [Concomitant]
  7. VASO-LOGES (HOMOCYSTEINE THIOLZACTONE) [Concomitant]
  8. FAMPYRA (DALFAMPRIDINE) TABLET [Suspect]
     Indication: GAIT DISTURBANCE
     Dosage: 10 MG, BID, ORAL
     Route: 048
     Dates: start: 20110922, end: 20111001
  9. ASCORBIC ACID [Concomitant]
  10. PROSTAGUTT (POPULUS SPP. EXTRACT, SERENOA REPENS EXTRACT, URTICA, SPP. [Concomitant]
  11. VIGANTOLETTEN (COLECALCIFEROL) [Concomitant]
  12. ZINKOROTAT (ZINC OROTATE) [Concomitant]
  13. ALENDRONATE SODIUM/CHOLECALCIFEROL [Concomitant]

REACTIONS (8)
  - CORONARY ARTERY DISEASE [None]
  - VENTRICULAR FIBRILLATION [None]
  - DRUG EFFECT DECREASED [None]
  - TONIC CONVULSION [None]
  - EPILEPSY [None]
  - ACUTE MYOCARDIAL INFARCTION [None]
  - CORONARY ARTERY STENOSIS [None]
  - AMNESIA [None]
